FAERS Safety Report 6688630-8 (Version None)
Quarter: 2010Q2

REPORT INFORMATION
  Report Type: 
  Country: None (occurrence: None)
  Receive Date: 20100420
  Receipt Date: 20100312
  Transmission Date: 20101027
  Serious: Yes (Death, Hospitalization)
  Sender: FDA-Public Use
  Company Number: US-MYLANLABS-2010S1004151

PATIENT
  Age: 57 Year
  Sex: Male

DRUGS (18)
  1. CLOZAPINE [Suspect]
  2. REGLAN [Concomitant]
  3. TERAZOSIN HCL [Concomitant]
  4. GLUCOPHAGE [Concomitant]
  5. DULCOLAX /00064401/ [Concomitant]
  6. COLACE [Concomitant]
  7. COGENTIN [Concomitant]
  8. RISPERIDONE [Concomitant]
  9. MILK OF MAGNESIA TAB [Concomitant]
  10. DEPAKOTE [Concomitant]
  11. BENADRYL [Concomitant]
  12. ATROPINE EYE OINTMENT [Concomitant]
     Route: 047
  13. ZOSYN [Concomitant]
  14. RESTORIL [Concomitant]
  15. INSULIN [Concomitant]
  16. VANCOMYCIN [Concomitant]
  17. ZOFRAN [Concomitant]
  18. ATIVAN [Concomitant]

REACTIONS (4)
  - FAECALOMA [None]
  - PLATELET COUNT DECREASED [None]
  - PNEUMONIA [None]
  - SEPSIS [None]
